FAERS Safety Report 18624684 (Version 1)
Quarter: 2020Q4

REPORT INFORMATION
  Report Type: Spontaneous
  Country: US (occurrence: US)
  Receive Date: 20201216
  Receipt Date: 20201216
  Transmission Date: 20210114
  Serious: Yes (Death, Hospitalization, Disabling, Other)
  Sender: FDA-Public Use
  Company Number: US-PURDUE-USA-2020-0180139

PATIENT
  Age: 59 Year
  Sex: Male

DRUGS (1)
  1. OXYCODONE HCL TABLETS (RHODES 91-490) [Suspect]
     Active Substance: OXYCODONE HYDROCHLORIDE
     Indication: PRODUCT USED FOR UNKNOWN INDICATION
     Dosage: UNKNOWN
     Route: 048

REACTIONS (15)
  - Trisomy 21 [Unknown]
  - Developmental delay [Unknown]
  - Septic shock [Fatal]
  - Drug abuse [Fatal]
  - Chest pain [Unknown]
  - Drug dependence [Unknown]
  - Cardiac arrest [Fatal]
  - Respiratory failure [Fatal]
  - Chronic obstructive pulmonary disease [Fatal]
  - Pneumonia aspiration [Fatal]
  - Staphylococcal infection [Fatal]
  - Overdose [Unknown]
  - Dyspnoea [Unknown]
  - Learning disability [Unknown]
  - Cardiac disorder [Unknown]

NARRATIVE: CASE EVENT DATE: 20190716
